FAERS Safety Report 8028215-4 (Version None)
Quarter: 2012Q1

REPORT INFORMATION
  Report Type: 
  Country: None (occurrence: None)
  Receive Date: 20120106
  Receipt Date: 20111230
  Transmission Date: 20120608
  Serious: Yes (Life-Threatening, Hospitalization, Other)
  Sender: FDA-Public Use
  Company Number: NL-JNJFOC-20090908658

PATIENT
  Sex: Female
  Weight: 85 kg

DRUGS (17)
  1. METHOTREXATE [Suspect]
     Indication: RHEUMATOID ARTHRITIS
     Dates: start: 20010217
  2. RETINOL [Concomitant]
     Indication: SKIN DISORDER
     Route: 061
  3. TRAMADOL HYDROCHLORIDE [Concomitant]
     Indication: PAIN
  4. SYNAPAUSE [Concomitant]
     Indication: HORMONE REPLACEMENT THERAPY
     Dates: start: 20040501
  5. HYDROCORTISONE ACETATE [Concomitant]
     Indication: HYPERTENSION
     Dates: start: 20090101
  6. FOLIC ACID [Concomitant]
     Indication: PROPHYLAXIS
     Dates: start: 20011201
  7. PANTOPRAZOLE SODIUM [Concomitant]
     Indication: GASTROINTESTINAL DISORDER THERAPY
     Dates: start: 20030101
  8. HYDROCHLOROTHIAZIDE [Concomitant]
     Indication: HYPERTENSION
     Dates: start: 20090101
  9. VITAMIN C [Concomitant]
  10. INFLIXIMAB, RECOMBINANT [Suspect]
     Indication: RHEUMATOID ARTHRITIS
     Route: 042
     Dates: start: 20011217, end: 20030424
  11. ACETAMINOPHEN [Concomitant]
     Indication: PAIN
     Dates: start: 20080101
  12. CALCICHEW D3 [Concomitant]
     Indication: OSTEOPOROSIS PROPHYLAXIS
     Dates: start: 20030701
  13. PIPRAM [Concomitant]
     Indication: URINARY TRACT INFECTION
     Dates: start: 20090201
  14. SIMVASTATIN [Concomitant]
     Indication: BLOOD CHOLESTEROL
  15. SULFASALAZINE [Suspect]
     Indication: RHEUMATOID ARTHRITIS
     Dates: start: 20110620, end: 20111229
  16. TERBINAFINE HCL [Concomitant]
     Indication: ANTIFUNGAL PROPHYLAXIS
  17. IRBESARTAN AND HYDROCHLOROTHIAZIDE [Concomitant]
     Indication: CARDIOVASCULAR DISORDER

REACTIONS (3)
  - COLON CANCER [None]
  - COLON CANCER RECURRENT [None]
  - COLORECTAL CANCER METASTATIC [None]
